FAERS Safety Report 5377428-9 (Version None)
Quarter: 2007Q3

REPORT INFORMATION
  Report Type: 
  Country: None (occurrence: None)
  Receive Date: 20070703
  Receipt Date: 20070627
  Transmission Date: 20080115
  Serious: Yes (Death)
  Sender: FDA-Public Use
  Company Number: B0477446A

PATIENT
  Age: 28 Year
  Sex: Male

DRUGS (1)
  1. SEROXAT [Suspect]
     Indication: DEPRESSION
     Route: 065
     Dates: end: 20070615

REACTIONS (1)
  - COMPLETED SUICIDE [None]
